FAERS Safety Report 9913408 (Version 1)
Quarter: 2014Q1

REPORT INFORMATION
  Report Type: Spontaneous
  Country: US (occurrence: None)
  Receive Date: 20140218
  Receipt Date: 20140218
  Transmission Date: 20141002
  Serious: No
  Sender: FDA-Public Use
  Company Number: None

PATIENT
  Age: 13 Year
  Sex: Male

DRUGS (1)
  1. GEODON [Suspect]
     Route: 048

REACTIONS (4)
  - Vomiting [None]
  - Gastric disorder [None]
  - Weight decreased [None]
  - Abdominal discomfort [None]
